FAERS Safety Report 4711790-2 (Version None)
Quarter: 2005Q3

REPORT INFORMATION
  Report Type: 
  Country: None (occurrence: None)
  Receive Date: 20050712
  Receipt Date: 20050630
  Transmission Date: 20060218
  Serious: Yes (Other)
  Sender: FDA-Public Use
  Company Number: US-JNJFOC-20050700626

PATIENT
  Sex: Male
  Weight: 74.84 kg

DRUGS (2)
  1. REMICADE [Suspect]
     Indication: CROHN'S DISEASE
     Route: 042
  2. COZAAR [Concomitant]

REACTIONS (3)
  - MUSCLE SPASMS [None]
  - RENAL FAILURE [None]
  - RENAL PAIN [None]
